FAERS Safety Report 8506183-6 (Version None)
Quarter: 2012Q3

REPORT INFORMATION
  Report Type: 
  Country: None (occurrence: None)
  Receive Date: 20120712
  Receipt Date: 20120703
  Transmission Date: 20120928
  Serious: Yes (Hospitalization)
  Sender: FDA-Public Use
  Company Number: IE-ELI_LILLY_AND_COMPANY-IE201206002154

PATIENT
  Sex: Female

DRUGS (8)
  1. COMBIVENT [Concomitant]
  2. AUGMENTIN '125' [Concomitant]
  3. THEOPHYLLINE [Concomitant]
  4. SINGULAIR [Concomitant]
  5. PREDNISOLONE [Concomitant]
  6. WARFARIN SODIUM [Concomitant]
  7. MORPHINE [Concomitant]
  8. FORTEO [Suspect]
     Indication: OSTEOPOROSIS
     Dosage: 20 UG, QD
     Route: 058
     Dates: start: 20120531

REACTIONS (1)
  - ASTHMA [None]
